FAERS Safety Report 25790620 (Version 1)
Quarter: 2025Q3

REPORT INFORMATION
  Report Type: Spontaneous
  Country: US (occurrence: US)
  Receive Date: 20250911
  Receipt Date: 20250911
  Transmission Date: 20251020
  Serious: Yes (Hospitalization)
  Sender: MYLAN
  Company Number: US-MYLANLABS-2025M1076404

PATIENT
  Age: 51 Year
  Sex: Female

DRUGS (7)
  1. VANCOMYCIN HYDROCHLORIDE [Suspect]
     Active Substance: VANCOMYCIN HYDROCHLORIDE
     Indication: Staphylococcal parotitis
  2. GEMCITABINE [Suspect]
     Active Substance: GEMCITABINE
     Indication: Myxoid liposarcoma
  3. DOCETAXEL [Suspect]
     Active Substance: DOCETAXEL
     Indication: Myxoid liposarcoma
  4. CEFEPIME [Suspect]
     Active Substance: CEFEPIME HYDROCHLORIDE
     Indication: Staphylococcal parotitis
  5. METRONIDAZOLE [Suspect]
     Active Substance: METRONIDAZOLE
     Indication: Staphylococcal parotitis
  6. CIPROFLOXACIN [Suspect]
     Active Substance: CIPROFLOXACIN
     Indication: Staphylococcal parotitis
  7. CLINDAMYCIN [Suspect]
     Active Substance: CLINDAMYCIN
     Indication: Staphylococcal parotitis

REACTIONS (2)
  - Staphylococcal infection [Recovered/Resolved]
  - Large intestine infection [Recovered/Resolved]
